FAERS Safety Report 7537061-7 (Version None)
Quarter: 2011Q2

REPORT INFORMATION
  Report Type: 
  Country: None (occurrence: None)
  Receive Date: 20110609
  Receipt Date: 20110527
  Transmission Date: 20111010
  Serious: Yes (Other)
  Sender: FDA-Public Use
  Company Number: PHEH2010US03472

PATIENT
  Sex: Female

DRUGS (7)
  1. MOBIC [Concomitant]
  2. ADVAIR DISKUS 100/50 [Concomitant]
  3. PROAIR HFA [Concomitant]
  4. SPIRIVA [Concomitant]
  5. ZELNORM [Suspect]
     Indication: GASTRIC DISORDER
  6. SINGULAIR [Concomitant]
  7. OMEPRAZOLE [Concomitant]

REACTIONS (7)
  - INJURY [None]
  - CHEST PAIN [None]
  - PALPITATIONS [None]
  - INTESTINAL FUNCTIONAL DISORDER [None]
  - ARRHYTHMIA [None]
  - CARDIAC DISORDER [None]
  - DYSPNOEA [None]
